FAERS Safety Report 9842235 (Version 2)
Quarter: 2014Q1

REPORT INFORMATION
  Report Type: Report from Study
  Country: RU (occurrence: RU)
  Receive Date: 20140124
  Receipt Date: 20140221
  Transmission Date: 20141002
  Serious: Yes (Life-Threatening, Hospitalization)
  Sender: FDA-Public Use
  Company Number: RU-GLAXOSMITHKLINE-B0962547A

PATIENT
  Sex: Male
  Weight: 90 kg

DRUGS (8)
  1. OMACOR [Suspect]
     Indication: MYOCARDIAL INFARCTION
     Dosage: 1000MG PER DAY
     Route: 048
     Dates: start: 20130429
  2. WARFARIN SODIUM [Concomitant]
     Indication: ATRIAL FIBRILLATION
     Dosage: 7.5MG PER DAY
     Route: 048
     Dates: start: 20130402
  3. BISOPROLOL [Concomitant]
     Indication: ATRIAL FIBRILLATION
     Dosage: 10MG PER DAY
     Route: 048
     Dates: start: 20100120
  4. CANDESARTAN [Concomitant]
     Indication: HYPERTENSION
     Dosage: 16MG PER DAY
     Route: 048
     Dates: start: 20130429, end: 20131129
  5. AMLODIPINE [Concomitant]
     Indication: HYPERTENSION
     Dosage: 10MG PER DAY
     Route: 048
     Dates: start: 20130408, end: 20131129
  6. ATORVASTATIN [Concomitant]
     Indication: MYOCARDIAL INFARCTION
     Dosage: 20MG PER DAY
     Route: 048
     Dates: start: 20130402
  7. CLOPIDOGREL [Concomitant]
     Indication: MYOCARDIAL INFARCTION
     Dosage: 75MG PER DAY
     Route: 048
     Dates: start: 20130402, end: 20131129
  8. HYDROCHLOROTHIAZIDE [Concomitant]
     Indication: HYPERTENSION
     Dosage: 25MG PER DAY
     Route: 048
     Dates: start: 20130429

REACTIONS (1)
  - Cardiac failure congestive [Recovered/Resolved with Sequelae]
